FAERS Safety Report 13641757 (Version 1)
Quarter: 2017Q2

REPORT INFORMATION
  Report Type: Spontaneous
  Country: US (occurrence: US)
  Receive Date: 20170610
  Receipt Date: 20170610
  Transmission Date: 20170830
  Serious: No
  Sender: FDA-Public Use
  Company Number: None

PATIENT
  Age: 28 Year
  Sex: Female
  Weight: 52.21 kg

DRUGS (1)
  1. PARAGARD T 380A [Suspect]
     Active Substance: COPPER

REACTIONS (6)
  - Menorrhagia [None]
  - Abortion induced [None]
  - Device breakage [None]
  - Condition aggravated [None]
  - Ectopic pregnancy with contraceptive device [None]
  - Maternal exposure during pregnancy [None]

NARRATIVE: CASE EVENT DATE: 20170515
